FAERS Safety Report 20734227 (Version 1)
Quarter: 2022Q2

REPORT INFORMATION
  Report Type: Spontaneous
  Country: ES (occurrence: ES)
  Receive Date: 20220421
  Receipt Date: 20220421
  Transmission Date: 20220721
  Serious: Yes (Hospitalization, Other)
  Sender: FDA-Public Use
  Company Number: ES-ADVANZ PHARMA-202202001092

PATIENT

DRUGS (11)
  1. LEVETIRACETAM [Suspect]
     Active Substance: LEVETIRACETAM
     Indication: Partial seizures
     Dosage: DECREASED TO 500/500 MG
     Route: 065
  2. LEVETIRACETAM [Suspect]
     Active Substance: LEVETIRACETAM
     Dosage: UNK, DOSE INCREASED TO 500/1000 MG
     Route: 065
  3. LEVETIRACETAM [Suspect]
     Active Substance: LEVETIRACETAM
     Dosage: UNK, 500/500
     Route: 065
     Dates: start: 2016
  4. LEVETIRACETAM [Suspect]
     Active Substance: LEVETIRACETAM
     Dosage: UNK, DECREASED TO 250/250
     Route: 065
     Dates: start: 2019, end: 2019
  5. ESLICARBAZEPINE ACETATE [Suspect]
     Active Substance: ESLICARBAZEPINE ACETATE
     Indication: Partial seizures
     Dosage: RAISED TO 400/800 MG
     Route: 065
     Dates: start: 2017
  6. ESLICARBAZEPINE ACETATE [Suspect]
     Active Substance: ESLICARBAZEPINE ACETATE
     Dosage: 800 MILLIGRAM (800 MG (CHANGED BACK)
     Route: 065
     Dates: start: 2018
  7. PERAMPANEL [Suspect]
     Active Substance: PERAMPANEL
     Indication: Partial seizures
     Dosage: 2 MILLIGRAM, ONCE A DAY (2 MG, QD (AT BED TIME)
     Route: 065
     Dates: start: 2019
  8. PERAMPANEL [Suspect]
     Active Substance: PERAMPANEL
     Dosage: 4 MILLIGRAM, ONCE A DAY (4 MG, QD (AT BEDTIME)
     Route: 065
     Dates: start: 2019
  9. PERAMPANEL [Suspect]
     Active Substance: PERAMPANEL
     Dosage: 6 MILLIGRAM,  INCREASED
     Route: 065
     Dates: start: 2019
  10. PERAMPANEL [Suspect]
     Active Substance: PERAMPANEL
     Dosage: 8 MILLIGRAM
     Route: 065
     Dates: start: 2021
  11. ZONISAMIDE [Suspect]
     Active Substance: ZONISAMIDE
     Indication: Partial seizures
     Dosage: SLOW SCHEDULE UP TO 50-100 MGS, ZONEGRAN
     Route: 065
     Dates: start: 2016, end: 2019

REACTIONS (14)
  - Somnolence [Unknown]
  - Daydreaming [Unknown]
  - Drug intolerance [Unknown]
  - Anxiety [Unknown]
  - Nausea [Unknown]
  - Partial seizures [Unknown]
  - Dizziness [Unknown]
  - Decreased appetite [Unknown]
  - Unresponsive to stimuli [Unknown]
  - Intentional self-injury [Unknown]
  - Condition aggravated [Unknown]
  - Visual acuity reduced [Unknown]
  - Impulse-control disorder [Unknown]
  - Drug ineffective [Unknown]

NARRATIVE: CASE EVENT DATE: 20160101
